FAERS Safety Report 7779005-9 (Version None)
Quarter: 2011Q3

REPORT INFORMATION
  Report Type: 
  Country: None (occurrence: None)
  Receive Date: 20110926
  Receipt Date: 20110919
  Transmission Date: 20111222
  Serious: Yes (Hospitalization, Other)
  Sender: FDA-Public Use
  Company Number: US-JNJFOC-20110600152

PATIENT
  Sex: Female

DRUGS (3)
  1. TOPAMAX [Suspect]
     Indication: MIGRAINE
     Route: 048
     Dates: start: 20101201, end: 20110501
  2. PREVACID [Concomitant]
     Indication: GASTROOESOPHAGEAL REFLUX DISEASE
     Route: 048
     Dates: start: 20040101
  3. TOPAMAX [Suspect]
     Dosage: NDC: 50458-641-65
     Route: 048
     Dates: start: 20060101

REACTIONS (11)
  - WEIGHT INCREASED [None]
  - TREATMENT NONCOMPLIANCE [None]
  - NAUSEA [None]
  - PRODUCT ODOUR ABNORMAL [None]
  - DIARRHOEA [None]
  - VOMITING [None]
  - PARAESTHESIA [None]
  - GASTRIC DISORDER [None]
  - DYSPEPSIA [None]
  - POOR QUALITY DRUG ADMINISTERED [None]
  - ABDOMINAL PAIN [None]
